FAERS Safety Report 5411954-9 (Version None)
Quarter: 2007Q3

REPORT INFORMATION
  Report Type: 
  Country: None (occurrence: None)
  Receive Date: 20070813
  Receipt Date: 20070731
  Transmission Date: 20080115
  Serious: Yes (Life-Threatening, Hospitalization)
  Sender: FDA-Public Use
  Company Number: JP-AMGEN-US238240

PATIENT
  Age: 55 Year
  Sex: Female

DRUGS (5)
  1. ENBREL [Suspect]
     Indication: RHEUMATOID ARTHRITIS
     Route: 058
     Dates: start: 20070601, end: 20070727
  2. DICLOFENAC [Concomitant]
     Dosage: UNSPECIFIED
     Route: 048
  3. FAMOTIDINE [Concomitant]
     Dosage: UNSPECIFIED
     Route: 048
  4. METHOTREXATE [Concomitant]
     Dosage: UNSPECIFIED
     Dates: start: 20070615
  5. ACTONEL [Concomitant]
     Dosage: UNSPECIFIED
     Route: 048

REACTIONS (2)
  - GENERALISED OEDEMA [None]
  - RHABDOMYOLYSIS [None]
